FAERS Safety Report 12439375 (Version 1)
Quarter: 2016Q2

REPORT INFORMATION
  Report Type: Spontaneous
  Country: US (occurrence: US)
  Receive Date: 20160606
  Receipt Date: 20160606
  Transmission Date: 20160815
  Serious: No
  Sender: FDA-Public Use
  Company Number: US-TEVA-663434USA

PATIENT
  Age: 62 Year
  Sex: Female

DRUGS (11)
  1. TRAMADOL. [Concomitant]
     Active Substance: TRAMADOL
  2. BACLOFEN. [Concomitant]
     Active Substance: BACLOFEN
  3. COPAXONE [Suspect]
     Active Substance: GLATIRAMER ACETATE
     Indication: MULTIPLE SCLEROSIS
     Route: 058
  4. FLOVENT [Concomitant]
     Active Substance: FLUTICASONE PROPIONATE
  5. VERAMYST [Concomitant]
     Active Substance: FLUTICASONE FUROATE
  6. VAGIFEM [Concomitant]
     Active Substance: ESTRADIOL
  7. VALSARTAN. [Concomitant]
     Active Substance: VALSARTAN
  8. OXYBUTYNIN [Concomitant]
     Active Substance: OXYBUTYNIN
  9. MONTELUKAST [Concomitant]
     Active Substance: MONTELUKAST SODIUM
  10. SINGULAIR [Concomitant]
     Active Substance: MONTELUKAST SODIUM
  11. PREMARIN [Concomitant]
     Active Substance: ESTROGENS, CONJUGATED

REACTIONS (2)
  - Flushing [Unknown]
  - Anal incontinence [Unknown]

NARRATIVE: CASE EVENT DATE: 201605
